FAERS Safety Report 25689109 (Version 5)
Quarter: 2025Q3

REPORT INFORMATION
  Report Type: Report from Study
  Country: JP (occurrence: JP)
  Receive Date: 20250818
  Receipt Date: 20250828
  Transmission Date: 20251020
  Serious: Yes (Hospitalization)
  Sender: ABBVIE
  Company Number: JP-ABBVIE-6412032

PATIENT
  Age: 68 Year
  Sex: Female

DRUGS (4)
  1. VYALEV [Suspect]
     Active Substance: FOSCARBIDOPA\FOSLEVODOPA
     Indication: Parkinson^s disease
     Dosage: 0.17 ML/DAY
     Route: 058
     Dates: start: 20250804
  2. LEVODOPA [Concomitant]
     Active Substance: LEVODOPA
     Indication: Parkinson^s disease
     Route: 048
  3. SELEGILINE HYDROCHLORIDE [Concomitant]
     Active Substance: SELEGILINE HYDROCHLORIDE
     Indication: Parkinson^s disease
     Route: 048
  4. PRAMIPEXOLE [Concomitant]
     Active Substance: PRAMIPEXOLE
     Indication: Parkinson^s disease
     Route: 048

REACTIONS (8)
  - Pyrexia [Recovered/Resolved]
  - Fatigue [Unknown]
  - Infusion site induration [Not Recovered/Not Resolved]
  - Infusion site discolouration [Unknown]
  - Infusion site reaction [Not Recovered/Not Resolved]
  - Infusion site discharge [Unknown]
  - Inflammatory marker increased [Unknown]
  - Infection [Unknown]

NARRATIVE: CASE EVENT DATE: 20250801
